FAERS Safety Report 5105020-X (Version None)
Quarter: 2006Q3

REPORT INFORMATION
  Report Type: 
  Country: None (occurrence: None)
  Receive Date: 20060911
  Receipt Date: 20060823
  Transmission Date: 20061208
  Serious: Yes (Hospitalization, Other)
  Sender: FDA-Public Use
  Company Number: US200608004998

PATIENT
  Age: 60 Year
  Sex: Female

DRUGS (11)
  1. CYMBALTA [Suspect]
     Indication: DEPRESSION
     Dosage: 60 MG, DAILY (1/D), UNK
     Dates: end: 20060819
  2. DIOVAN 9VALSARTAN) [Concomitant]
  3. DILTIAZEM [Concomitant]
  4. COUMADIN [Concomitant]
  5. LASIX [Concomitant]
  6. PROTONIX [Concomitant]
  7. LIPITOR [Concomitant]
  8. ZETIA [Concomitant]
  9. DOXEPIN HCL [Concomitant]
  10. CALCIUM (CALCIUM) [Concomitant]
  11. XANAX       /USA/(ALPRAZOLAM) [Concomitant]

REACTIONS (3)
  - CARDIAC DISORDER [None]
  - CARDIAC OPERATION [None]
  - PANIC ATTACK [None]
